FAERS Safety Report 7579814-5 (Version None)
Quarter: 2011Q2

REPORT INFORMATION
  Report Type: 
  Country: None (occurrence: None)
  Receive Date: 20110629
  Receipt Date: 20100707
  Transmission Date: 20111010
  Serious: No
  Sender: FDA-Public Use
  Company Number: A0868949A

PATIENT
  Age: 45 Year
  Sex: Female

DRUGS (2)
  1. NO CONCURRENT MEDICATION [Concomitant]
  2. ZYBAN [Suspect]
     Dosage: 150MG PER DAY
     Route: 048
     Dates: start: 20100603, end: 20100706

REACTIONS (1)
  - DRUG INEFFECTIVE [None]
